FAERS Safety Report 7547579-9 (Version None)
Quarter: 2011Q2

REPORT INFORMATION
  Report Type: 
  Country: None (occurrence: None)
  Receive Date: 20110614
  Receipt Date: 20110602
  Transmission Date: 20111010
  Serious: Yes (Other)
  Sender: FDA-Public Use
  Company Number: PHHY2011JP48969

PATIENT
  Sex: Male

DRUGS (9)
  1. SIMULECT [Suspect]
     Indication: RENAL TRANSPLANT
     Dosage: 20 MG
     Route: 042
     Dates: start: 20090623, end: 20090623
  2. SIMULECT [Suspect]
     Dosage: 20 MG
     Route: 042
     Dates: start: 20090627, end: 20090627
  3. SANDIMMUNE [Concomitant]
     Indication: RENAL TRANSPLANT
     Dosage: 240 MG
     Route: 042
     Dates: start: 20090623, end: 20090623
  4. PROGRAF [Concomitant]
     Indication: RENAL TRANSPLANT
     Dosage: UNK
     Route: 048
     Dates: start: 20090723
  5. NEORAL [Suspect]
     Indication: RENAL TRANSPLANT
     Dosage: 500 MG
     Route: 048
  6. NEORAL [Suspect]
     Dosage: UNK
     Route: 048
     Dates: start: 20090624, end: 20090722
  7. PREDNISOLONE [Concomitant]
     Indication: RENAL TRANSPLANT
     Dosage: 50 MG
     Route: 042
     Dates: start: 20090623, end: 20090623
  8. BREDININ [Suspect]
     Indication: RENAL TRANSPLANT
     Dosage: UNK
     Route: 048
     Dates: start: 20090624
  9. PREDNISOLONE [Suspect]
     Indication: RENAL TRANSPLANT
     Dosage: UNK
     Route: 048
     Dates: start: 20090624

REACTIONS (2)
  - NEPHROPATHY TOXIC [None]
  - RENAL TUBULAR NECROSIS [None]
